FAERS Safety Report 22589255 (Version 2)
Quarter: 2023Q2

REPORT INFORMATION
  Report Type: Other
  Country: OM (occurrence: None)
  Receive Date: 20230612
  Receipt Date: 20230619
  Transmission Date: 20230722
  Serious: Yes (Hospitalization, Other)
  Sender: FDA-Public Use
  Company Number: OM-ROCHE-3307335

PATIENT
  Age: 72 Year
  Sex: Male
  Weight: 63 kg

DRUGS (36)
  1. ATEZOLIZUMAB [Suspect]
     Active Substance: ATEZOLIZUMAB
     Indication: Hepatocellular carcinoma
     Dosage: ON 17/JAN/2023, HE RECEIVED THE MOST RECENT DOSE OF ATEZOLIZUMAB 1200MG DRUG PRIOR TO AE AND SAE
     Route: 041
     Dates: start: 20221115
  2. BEVACIZUMAB [Suspect]
     Active Substance: BEVACIZUMAB
     Indication: Hepatocellular carcinoma
     Route: 065
     Dates: start: 20221115
  3. AMLODIPINE BESYLATE [Concomitant]
     Active Substance: AMLODIPINE BESYLATE
     Dates: start: 2012, end: 20230430
  4. ATORVASTATIN [Concomitant]
     Active Substance: ATORVASTATIN
     Dates: start: 2012, end: 20230430
  5. ATORVASTATIN [Concomitant]
     Active Substance: ATORVASTATIN
     Dates: start: 20230218, end: 20230218
  6. TAMSULOSIN HYDROCHLORIDE [Concomitant]
     Active Substance: TAMSULOSIN HYDROCHLORIDE
     Dates: start: 2014, end: 20230430
  7. ASPIRIN [Concomitant]
     Active Substance: ASPIRIN
     Dates: start: 2018, end: 20230430
  8. ACETAMINOPHEN [Concomitant]
     Active Substance: ACETAMINOPHEN
     Dates: start: 20221227, end: 20230216
  9. ACETAMINOPHEN [Concomitant]
     Active Substance: ACETAMINOPHEN
     Dates: start: 20230219, end: 20230311
  10. ACETAMINOPHEN [Concomitant]
     Active Substance: ACETAMINOPHEN
     Dates: start: 20230311, end: 20230312
  11. ACETAMINOPHEN [Concomitant]
     Active Substance: ACETAMINOPHEN
     Dates: start: 20230313, end: 20230314
  12. ACETAMINOPHEN [Concomitant]
     Active Substance: ACETAMINOPHEN
     Dates: start: 20230314, end: 20230430
  13. METOCLOPRAMIDE [Concomitant]
     Active Substance: METOCLOPRAMIDE
     Indication: Nausea
     Dates: start: 20221227, end: 20230310
  14. METOCLOPRAMIDE [Concomitant]
     Active Substance: METOCLOPRAMIDE
     Dates: start: 20230311, end: 20230313
  15. DENOSUMAB [Concomitant]
     Active Substance: DENOSUMAB
     Dates: start: 20230216, end: 20230218
  16. SOLIFENACIN [Concomitant]
     Active Substance: SOLIFENACIN
     Indication: Hypertonic bladder
     Dates: start: 20230216, end: 20230430
  17. SOLIFENACIN [Concomitant]
     Active Substance: SOLIFENACIN
     Dates: start: 20230430
  18. ZOLEDRONIC ACID [Concomitant]
     Active Substance: ZOLEDRONIC ACID
     Dates: start: 20230216, end: 20230216
  19. ENOXAPARIN [Concomitant]
     Active Substance: ENOXAPARIN
     Dates: start: 20230216, end: 20230218
  20. ENOXAPARIN [Concomitant]
     Active Substance: ENOXAPARIN
     Dates: start: 20230311, end: 20230314
  21. ENOXAPARIN [Concomitant]
     Active Substance: ENOXAPARIN
     Dates: start: 20230406, end: 20230406
  22. ENOXAPARIN [Concomitant]
     Active Substance: ENOXAPARIN
     Dates: start: 20230430, end: 20230430
  23. AMITRIPTYLINE [Concomitant]
     Active Substance: AMITRIPTYLINE
     Dates: start: 20230313, end: 20230409
  24. POTASSIUM PHOSPHATE [Concomitant]
     Active Substance: POTASSIUM PHOSPHATE
     Indication: Hypophosphataemia
     Dates: start: 20230311, end: 20230311
  25. POTASSIUM PHOSPHATE [Concomitant]
     Active Substance: POTASSIUM PHOSPHATE
     Dates: start: 20230407, end: 20230407
  26. POTASSIUM PHOSPHATE [Concomitant]
     Active Substance: POTASSIUM PHOSPHATE
     Dates: start: 20230408, end: 20230408
  27. POTASSIUM PHOSPHATE [Concomitant]
     Active Substance: POTASSIUM PHOSPHATE
     Dates: start: 20230430, end: 20230430
  28. DEXAMETHASONE [Concomitant]
     Active Substance: DEXAMETHASONE
     Dates: start: 20230310, end: 20230317
  29. DEXAMETHASONE [Concomitant]
     Active Substance: DEXAMETHASONE
     Dates: start: 20230217, end: 20230430
  30. SODIUM CHLORIDE [Concomitant]
     Active Substance: SODIUM CHLORIDE
     Dates: start: 20230406, end: 20230406
  31. SODIUM CHLORIDE [Concomitant]
     Active Substance: SODIUM CHLORIDE
     Dates: start: 20230430, end: 20230430
  32. ESOMEPRAZOLE [Concomitant]
     Active Substance: ESOMEPRAZOLE
     Dates: start: 20230407, end: 20230409
  33. ESOMEPRAZOLE [Concomitant]
     Active Substance: ESOMEPRAZOLE
     Dates: start: 20230430, end: 20230430
  34. MAGNESIUM OXIDE [Concomitant]
     Active Substance: MAGNESIUM OXIDE
     Indication: Hypomagnesaemia
     Dates: start: 20230408, end: 20230430
  35. GRANISETRON [Concomitant]
     Active Substance: GRANISETRON
     Indication: Nausea
     Dates: start: 20230430, end: 20230430
  36. SORAFENIB [Concomitant]
     Active Substance: SORAFENIB
     Dates: start: 20230216, end: 20230306

REACTIONS (18)
  - Pancreatitis acute [Not Recovered/Not Resolved]
  - Colitis [Not Recovered/Not Resolved]
  - Hypokalaemia [Recovered/Resolved]
  - Hypoglycaemia [Recovered/Resolved]
  - Depression [Not Recovered/Not Resolved]
  - Hypophosphataemia [Not Recovered/Not Resolved]
  - Hypotension [Recovered/Resolved]
  - Decreased appetite [Not Recovered/Not Resolved]
  - Abdominal pain [Not Recovered/Not Resolved]
  - Dehydration [Not Recovered/Not Resolved]
  - Micturition urgency [Not Recovered/Not Resolved]
  - Diarrhoea [Recovered/Resolved]
  - Hypercalcaemia [Recovered/Resolved]
  - Proteinuria [Recovered/Resolved]
  - Cough [Not Recovered/Not Resolved]
  - Vertigo [Not Recovered/Not Resolved]
  - Weight decreased [Not Recovered/Not Resolved]
  - Fatigue [Not Recovered/Not Resolved]

NARRATIVE: CASE EVENT DATE: 20221206
